FAERS Safety Report 24317460 (Version 1)
Quarter: 2024Q3

REPORT INFORMATION
  Report Type: Report from Study
  Country: FR (occurrence: FR)
  Receive Date: 20240913
  Receipt Date: 20240913
  Transmission Date: 20241016
  Serious: Yes (Other)
  Sender: RANBAXY
  Company Number: FR-SUN PHARMACEUTICAL INDUSTRIES LTD-2024R1-467825

PATIENT
  Age: 79 Year
  Sex: Female

DRUGS (5)
  1. METHOTREXATE [Suspect]
     Active Substance: METHOTREXATE
     Indication: Vitiligo
     Dosage: 15 MILLIGRAM, WEEKLY
     Route: 065
  2. METHYLPREDNISOLONE [Suspect]
     Active Substance: METHYLPREDNISOLONE
     Indication: Vitiligo
     Dosage: UNK (1 COURSE OF 500 MG ON 3 CONSECUTIVE DAYS, EVERY MONTH)
     Route: 042
  3. TACROLIMUS [Suspect]
     Active Substance: TACROLIMUS
     Indication: Vitiligo
     Dosage: UNK
     Route: 065
  4. UNSPECIFIED INGREDIENT [Suspect]
     Active Substance: UNSPECIFIED INGREDIENT
     Indication: Vitiligo
     Route: 061
  5. PSORALEN [Suspect]
     Active Substance: PSORALEN
     Indication: Vitiligo
     Dosage: UNK
     Route: 065

REACTIONS (1)
  - Low density lipoprotein increased [Recovered/Resolved]
